FAERS Safety Report 19583784 (Version 3)
Quarter: 2021Q3

REPORT INFORMATION
  Report Type: Report from Study
  Country: US (occurrence: US)
  Receive Date: 20210720
  Receipt Date: 20210902
  Transmission Date: 20211014
  Serious: Yes (Other)
  Sender: FDA-Public Use
  Company Number: US-ASTELLAS-2021US023990

PATIENT
  Sex: Male

DRUGS (3)
  1. TADALAFIL. [Interacting]
     Active Substance: TADALAFIL
     Indication: PRODUCT USED FOR UNKNOWN INDICATION
     Dosage: UNK UNK, UNKNOWN FREQ.
     Route: 065
  2. LUPRON [Suspect]
     Active Substance: LEUPROLIDE ACETATE
     Indication: PRODUCT USED FOR UNKNOWN INDICATION
     Dosage: UNK UNK, UNKNOWN FREQ.
     Route: 065
  3. ENZALUTAMIDE [Suspect]
     Active Substance: ENZALUTAMIDE
     Indication: PROSTATE CANCER
     Route: 048
     Dates: start: 20210514

REACTIONS (10)
  - Fatigue [Unknown]
  - Hot flush [Unknown]
  - Mood swings [Recovered/Resolved]
  - Insomnia [Not Recovered/Not Resolved]
  - Drug interaction [Unknown]
  - Urinary tract infection [Unknown]
  - Nocturia [Not Recovered/Not Resolved]
  - Erectile dysfunction [Unknown]
  - Anxiety [Unknown]
  - Depression [Unknown]

NARRATIVE: CASE EVENT DATE: 2021
